FAERS Safety Report 9349816 (Version 1)
Quarter: 2013Q2

REPORT INFORMATION
  Report Type: Spontaneous
  Country: GB (occurrence: None)
  Receive Date: 20130611
  Receipt Date: 20130611
  Transmission Date: 20140414
  Serious: Yes (Hospitalization)
  Sender: FDA-Public Use
  Company Number: 2013000125

PATIENT
  Age: 70 Year
  Sex: Male

DRUGS (13)
  1. ACEON (PERINDOPRIL ERBUMINE) TABLET, 2MG [Suspect]
     Indication: THROMBOSIS PROPHYLAXIS
     Route: 048
  2. INDAPAMIDE [Suspect]
     Indication: THROMBOSIS PROPHYLAXIS
     Route: 048
  3. ACIDEX (CALCIUM CARBONATE, SODIUM ALGINATE. SODIUM BICARBONATE) [Concomitant]
  4. AMIODIPINE (AMIODIPINE) [Concomitant]
  5. GABAPENTIN (GABAPENTIN) [Concomitant]
  6. GLYCRYL TRINITRATE (GLYCEYL TRINITRATE) [Concomitant]
  7. LAXIDO (MACROGOL 3350) [Concomitant]
  8. MESALAZINE (MESALAZINE) [Concomitant]
  9. PARACETAMOL (PARACETAMOL) [Concomitant]
  10. SALBUTAMOL (SALBUTAMOL) [Concomitant]
  11. SENNA [Concomitant]
  12. SYMBICORT [Concomitant]
  13. XYLOPROCT (ALUMINIUM DIACETATE, HYDROCORTISOE ACETATE, LIDOCAINE, ZINC OXIDE) [Concomitant]

REACTIONS (5)
  - Convulsion [None]
  - Hyponatraemia [None]
  - Confusional state [None]
  - Malaise [None]
  - Headache [None]
